FAERS Safety Report 25459749 (Version 1)
Quarter: 2025Q2

REPORT INFORMATION
  Report Type: Spontaneous
  Country: DE (occurrence: DE)
  Receive Date: 20250620
  Receipt Date: 20250620
  Transmission Date: 20250716
  Serious: Yes (Hospitalization)
  Sender: AUROBINDO
  Company Number: DE-BFARM-25004093

PATIENT
  Age: 38 Year
  Sex: Female

DRUGS (4)
  1. MIRTAZAPINE [Suspect]
     Active Substance: MIRTAZAPINE
     Indication: Product used for unknown indication
     Dosage: 15 MILLIGRAM, ONCE A DAY
     Route: 048
     Dates: start: 20240811, end: 20240819
  2. MIRTAZAPINE [Suspect]
     Active Substance: MIRTAZAPINE
     Dosage: 30 MILLIGRAM, ONCE A DAY
     Route: 048
     Dates: start: 20240820, end: 20240908
  3. MIRTAZAPINE [Suspect]
     Active Substance: MIRTAZAPINE
     Dosage: 30 MILLIGRAM, ONCE A DAY
     Route: 048
     Dates: start: 20240911
  4. LEVOTHYROXINE SODIUM [Concomitant]
     Active Substance: LEVOTHYROXINE SODIUM
     Indication: Hypothyroidism
     Dosage: 100 MICROGRAM, ONCE A DAY (FOR ABOUT 1 YEAR)
     Route: 048

REACTIONS (3)
  - Dizziness [Recovered/Resolved]
  - Myoclonus [Recovered/Resolved]
  - Muscle twitching [Recovered/Resolved]

NARRATIVE: CASE EVENT DATE: 20240908
